FAERS Safety Report 10436397 (Version 2)
Quarter: 2014Q4

REPORT INFORMATION
  Report Type: Spontaneous
  Country: US (occurrence: US)
  Receive Date: 20140908
  Receipt Date: 20141016
  Transmission Date: 20150528
  Serious: No
  Sender: FDA-Public Use
  Company Number: US-PFIZER INC-2014249074

PATIENT
  Age: 3 Year
  Sex: Female

DRUGS (6)
  1. CHILDRENS ADVIL [Suspect]
     Active Substance: IBUPROFEN
     Indication: MALAISE
     Dosage: UNK, ONE TEASPOON AS NEEDED (EXPLAINED AS EVERY 6 TO 8 HOUR
     Route: 048
  2. CHILDRENS ADVIL [Suspect]
     Active Substance: IBUPROFEN
     Indication: VIRAL INFECTION
  3. CHILDRENS ADVIL [Suspect]
     Active Substance: IBUPROFEN
     Indication: OROPHARYNGEAL PAIN
  4. CHILDRENS ADVIL [Suspect]
     Active Substance: IBUPROFEN
     Indication: PYREXIA
  5. TYLENOL [Concomitant]
     Active Substance: ACETAMINOPHEN
     Indication: PYREXIA
     Dosage: UNK
  6. CHILDRENS ADVIL [Suspect]
     Active Substance: IBUPROFEN
     Indication: NASAL CONGESTION

REACTIONS (2)
  - Product taste abnormal [Unknown]
  - Cough [Unknown]

NARRATIVE: CASE EVENT DATE: 20140906
